FAERS Safety Report 16194220 (Version 2)
Quarter: 2020Q4

REPORT INFORMATION
  Report Type: Spontaneous
  Country: US (occurrence: US)
  Receive Date: 20190414
  Receipt Date: 20201228
  Transmission Date: 20210113
  Serious: Yes (Hospitalization)
  Sender: FDA-Public Use
  Company Number: US-JNJFOC-20190402899

PATIENT
  Age: 48 Year
  Sex: Male

DRUGS (5)
  1. NITROQUICK [Concomitant]
     Active Substance: NITROGLYCERIN
  2. ASPRIN [Suspect]
     Active Substance: ASPIRIN
     Indication: PERIPHERAL ISCHAEMIA
     Route: 048
  3. PRILOSEC [Concomitant]
     Active Substance: OMEPRAZOLE MAGNESIUM
  4. XARELTO [Suspect]
     Active Substance: RIVAROXABAN
     Indication: PERIPHERAL ISCHAEMIA
     Route: 048
     Dates: start: 20190123, end: 20190128
  5. ACETAMINOPHEN W/OXYCODONE [Concomitant]
     Active Substance: ACETAMINOPHEN\OXYCODONE HYDROCHLORIDE
     Dosage: 3255 MG

REACTIONS (5)
  - Gastrointestinal haemorrhage [Recovering/Resolving]
  - Haemorrhagic stroke [Recovering/Resolving]
  - Off label use [Unknown]
  - Shock haemorrhagic [Recovering/Resolving]
  - Product use in unapproved indication [Unknown]

NARRATIVE: CASE EVENT DATE: 20190123
